FAERS Safety Report 24837839 (Version 1)
Quarter: 2025Q1

REPORT INFORMATION
  Report Type: Spontaneous
  Country: ES (occurrence: ES)
  Receive Date: 20250113
  Receipt Date: 20250113
  Transmission Date: 20250409
  Serious: Yes (Death)
  Sender: AMERICAN REGENT
  Company Number: ES-AMERICAN REGENT INC-2025000189

PATIENT
  Age: 89 Year
  Sex: Male

DRUGS (1)
  1. FERINJECT [Suspect]
     Active Substance: FERRIC CARBOXYMALTOSE
     Indication: Anaemia
     Route: 065
     Dates: start: 20231108, end: 20231108

REACTIONS (2)
  - Multiple organ dysfunction syndrome [Fatal]
  - Product prescribing error [Fatal]

NARRATIVE: CASE EVENT DATE: 20241029
